FAERS Safety Report 8112593-1 (Version None)
Quarter: 2012Q1

REPORT INFORMATION
  Report Type: 
  Country: None (occurrence: None)
  Receive Date: 20120203
  Receipt Date: 20120130
  Transmission Date: 20120608
  Serious: Yes (Other)
  Sender: FDA-Public Use
  Company Number: US-TEVA-320655USA

PATIENT
  Sex: Male

DRUGS (8)
  1. SERTRALINE HYDROCHLORIDE [Concomitant]
     Route: 048
  2. DIGOXIN [Concomitant]
     Route: 048
  3. FUROSEMIDE [Concomitant]
     Route: 048
  4. ACETAMINOPHEN [Concomitant]
     Dosage: AS NEEDED
     Route: 048
  5. LORAZEPAM [Suspect]
     Dosage: AS-NEEDED
     Route: 048
  6. ETHANOL [Interacting]
     Dosage: 2 GLASSES OF WINE
  7. WARFARIN SODIUM [Concomitant]
     Route: 048
  8. POTASSIUM [Concomitant]
     Route: 048

REACTIONS (3)
  - FALL [None]
  - SUBDURAL HAEMATOMA [None]
  - DRUG INTERACTION [None]
